FAERS Safety Report 17377903 (Version 2)
Quarter: 2020Q1

REPORT INFORMATION
  Report Type: Report from Study
  Country: DE (occurrence: DE)
  Receive Date: 20200206
  Receipt Date: 20200325
  Transmission Date: 20200409
  Serious: Yes (Death)
  Sender: FDA-Public Use
  Company Number: DE-JNJFOC-20200146508

PATIENT
  Age: 79 Year
  Sex: Male

DRUGS (2)
  1. RIVAROXABAN [Suspect]
     Active Substance: RIVAROXABAN
     Indication: ATRIAL FIBRILLATION
     Dosage: DAILY
     Route: 048
     Dates: end: 20200118
  2. ASPIRIN. [Suspect]
     Active Substance: ASPIRIN
     Indication: HEADACHE
     Dosage: UNK UNK, ONCE
     Route: 065

REACTIONS (2)
  - Haemorrhage intracranial [Fatal]
  - Cerebral ventricle collapse [Fatal]

NARRATIVE: CASE EVENT DATE: 20200119
